FAERS Safety Report 4616449-8 (Version None)
Quarter: 2005Q1

REPORT INFORMATION
  Report Type: 
  Country: None (occurrence: None)
  Receive Date: 20050318
  Receipt Date: 20050311
  Transmission Date: 20050727
  Serious: Yes (Hospitalization, Other)
  Sender: FDA-Public Use
  Company Number: KII-2005-0015475

PATIENT
  Age: 28 Year
  Sex: Male

DRUGS (5)
  1. OXYCONTIN [Suspect]
     Indication: DRUG USE FOR UNKNOWN INDICATION
  2. BENZODIAZEPINE DERIVATIVES [Suspect]
     Indication: DRUG USE FOR UNKNOWN INDICATION
  3. TETRAHYDROCANNABINOL(TETRAHYDRCANNABINOL) [Suspect]
     Indication: DRUG USE FOR UNKNOWN INDICATION
  4. TRICYCLIC ANTIDEPRESSANTS [Suspect]
     Indication: DRUG USE FOR UNKNOWN INDICATION
  5. ASPIRIN [Suspect]
     Indication: DRUG USE FOR UNKNOWN INDICATION

REACTIONS (14)
  - AGITATION [None]
  - BLOOD CREATINE PHOSPHOKINASE INCREASED [None]
  - BODY TEMPERATURE INCREASED [None]
  - CONFUSIONAL STATE [None]
  - FLUSHING [None]
  - HALLUCINATION [None]
  - HEART RATE INCREASED [None]
  - MUCOUS MEMBRANE DISORDER [None]
  - MYDRIASIS [None]
  - PNEUMONIA STREPTOCOCCAL [None]
  - POLYSUBSTANCE ABUSE [None]
  - RESPIRATORY RATE INCREASED [None]
  - TREMOR [None]
  - WHITE BLOOD CELL DISORDER [None]
